FAERS Safety Report 9753010 (Version 2)
Quarter: 2013Q4

REPORT INFORMATION
  Report Type: Spontaneous
  Country: DE (occurrence: DE)
  Receive Date: 20131213
  Receipt Date: 20131220
  Transmission Date: 20140711
  Serious: Yes (Hospitalization)
  Sender: FDA-Public Use
  Company Number: DE-JNJFOC-20131205040

PATIENT
  Sex: Male

DRUGS (3)
  1. XARELTO [Suspect]
     Indication: PRODUCT USED FOR UNKNOWN INDICATION
     Route: 048
  2. NEUROTRAT S [Concomitant]
     Route: 065
  3. GUTRON [Concomitant]
     Route: 065

REACTIONS (4)
  - Extradural haematoma [Unknown]
  - Subdural haematoma [Unknown]
  - Mass [Unknown]
  - Fall [Unknown]
